FAERS Safety Report 8075628-0 (Version None)
Quarter: 2012Q1

REPORT INFORMATION
  Report Type: 
  Country: None (occurrence: None)
  Receive Date: 20120127
  Receipt Date: 20120123
  Transmission Date: 20120608
  Serious: Yes (Life-Threatening)
  Sender: FDA-Public Use
  Company Number: FR-SANOFI-AVENTIS-2012SA004532

PATIENT
  Age: 78 Year
  Sex: Female

DRUGS (10)
  1. VALSARTAN  AND HYDROCHLOROTHIAZIDE [Concomitant]
     Route: 048
  2. DIGOXIN [Concomitant]
     Route: 048
  3. LASIX [Concomitant]
     Route: 048
  4. BISOPROLOL FUMARATE [Concomitant]
     Route: 048
  5. PYOSTACINE [Concomitant]
     Route: 048
     Dates: end: 20120105
  6. COUMADIN [Concomitant]
     Route: 065
     Dates: end: 20120102
  7. LOVENOX [Suspect]
     Indication: THROMBOSIS PROPHYLAXIS
     Route: 058
     Dates: start: 20120102, end: 20120109
  8. ATORVASTATIN [Concomitant]
     Route: 048
  9. LEVOTHYROXINE SODIUM [Concomitant]
     Route: 048
  10. CIPROFLOXACIN [Concomitant]
     Route: 048
     Dates: end: 20120105

REACTIONS (2)
  - CARDIAC ARREST [None]
  - MUSCLE HAEMORRHAGE [None]
